FAERS Safety Report 19006448 (Version 1)
Quarter: 2021Q1

REPORT INFORMATION
  Report Type: Spontaneous
  Country: ES (occurrence: ES)
  Receive Date: 20210315
  Receipt Date: 20210315
  Transmission Date: 20210420
  Serious: Yes (Life-Threatening, Hospitalization, Other)
  Sender: FDA-Public Use
  Company Number: ES-AUROBINDO-AUR-APL-2021-009652

PATIENT
  Age: 62 Year
  Sex: Female

DRUGS (2)
  1. CLOZAPINE. [Suspect]
     Active Substance: CLOZAPINE
     Dosage: 900 MILLIGRAM, ONCE A DAY REACHING A DOSE OF 900 MG/DAY BY THE THIRD WEEK
     Route: 065
  2. CLOZAPINE. [Suspect]
     Active Substance: CLOZAPINE
     Indication: PSYCHIATRIC DECOMPENSATION
     Dosage: UNK
     Route: 065

REACTIONS (6)
  - Cardiogenic shock [Unknown]
  - Ventricular dysfunction [Unknown]
  - Multiple organ dysfunction syndrome [Unknown]
  - Cardiac failure [Unknown]
  - Respiratory failure [Unknown]
  - Myocarditis [Unknown]
